FAERS Safety Report 15226487 (Version 17)
Quarter: 2021Q1

REPORT INFORMATION
  Report Type: Other
  Country: DE (occurrence: DE)
  Receive Date: 20180801
  Receipt Date: 20210218
  Transmission Date: 20210419
  Serious: Yes (Other)
  Sender: FDA-Public Use
  Company Number: DE-ROCHE-2162727

PATIENT
  Age: 40 Year
  Sex: Female

DRUGS (11)
  1. AERIUS [Concomitant]
     Indication: PREMEDICATION
     Dates: start: 20191203, end: 20191205
  2. OCREVUS [Suspect]
     Active Substance: OCRELIZUMAB
     Route: 042
     Dates: start: 20180625
  3. OCREVUS [Suspect]
     Active Substance: OCRELIZUMAB
     Indication: SECONDARY PROGRESSIVE MULTIPLE SCLEROSIS
     Route: 042
     Dates: start: 20180611
  4. OCREVUS [Suspect]
     Active Substance: OCRELIZUMAB
     Route: 042
     Dates: start: 20191204
  5. OCREVUS [Suspect]
     Active Substance: OCRELIZUMAB
     Route: 042
     Dates: start: 20190612
  6. BACLOFEN. [Concomitant]
     Active Substance: BACLOFEN
  7. DEKRISTOL [Concomitant]
     Active Substance: CHOLECALCIFEROL
  8. CORTISONE [Concomitant]
     Active Substance: CORTISONE
     Indication: PREMEDICATION
  9. OCREVUS [Suspect]
     Active Substance: OCRELIZUMAB
     Route: 042
  10. FAMPYRA [Concomitant]
     Active Substance: DALFAMPRIDINE
  11. CITALOPRAM [Concomitant]
     Active Substance: CITALOPRAM HYDROBROMIDE

REACTIONS (9)
  - Intentional product use issue [Unknown]
  - Off label use [Unknown]
  - Fatigue [Recovered/Resolved]
  - Metrorrhagia [Recovered/Resolved]
  - Nasopharyngitis [Recovered/Resolved]
  - Bacterial infection [Unknown]
  - Gait disturbance [Recovered/Resolved]
  - Oral herpes [Recovered/Resolved]
  - Fatigue [Recovered/Resolved]

NARRATIVE: CASE EVENT DATE: 20180717
